FAERS Safety Report 7396163-9 (Version None)
Quarter: 2011Q2

REPORT INFORMATION
  Report Type: 
  Country: None (occurrence: None)
  Receive Date: 20110406
  Receipt Date: 20110329
  Transmission Date: 20111010
  Serious: Yes (Other)
  Sender: FDA-Public Use
  Company Number: US-US-EMD SERONO, INC.-7050875

PATIENT
  Sex: Female

DRUGS (1)
  1. REBIF [Suspect]
     Indication: MULTIPLE SCLEROSIS
     Route: 058
     Dates: start: 20100128, end: 20110201

REACTIONS (6)
  - SYSTEMIC LUPUS ERYTHEMATOSUS [None]
  - INJECTION SITE HAEMATOMA [None]
  - INFLUENZA LIKE ILLNESS [None]
  - PARAESTHESIA [None]
  - HYPOAESTHESIA [None]
  - HEADACHE [None]
